FAERS Safety Report 18618563 (Version 1)
Quarter: 2020Q4

REPORT INFORMATION
  Report Type: Spontaneous
  Country: IE (occurrence: IE)
  Receive Date: 20201215
  Receipt Date: 20201215
  Transmission Date: 20210114
  Serious: Yes (Other)
  Sender: FDA-Public Use
  Company Number: IE-MACLEODS PHARMACEUTICALS US LTD-MAC2020029432

PATIENT

DRUGS (8)
  1. PROPOFOL. [Concomitant]
     Active Substance: PROPOFOL
     Indication: INDUCTION OF ANAESTHESIA
     Dosage: UNK, 2.5MGS/KG
     Route: 065
  2. FLUOXETINE [Concomitant]
     Active Substance: FLUOXETINE HYDROCHLORIDE
     Indication: DEPRESSIVE SYMPTOM
     Dosage: 20 MILLIGRAM, QD
     Route: 065
  3. OMEPRAZOLE. [Concomitant]
     Active Substance: OMEPRAZOLE
     Indication: PRODUCT USED FOR UNKNOWN INDICATION
     Dosage: 20 MILLIGRAM, QD
     Route: 065
  4. SUXAMETHONIUM [Interacting]
     Active Substance: SUCCINYLCHOLINE
     Indication: INDUCTION OF ANAESTHESIA
     Dosage: UNK, 1 MG/KG
     Route: 065
  5. NIMESULIDE [Concomitant]
     Active Substance: NIMESULIDE
     Indication: PRODUCT USED FOR UNKNOWN INDICATION
     Dosage: 12.5 MILLIGRAM, QD
     Route: 065
  6. DONEPEZIL. [Suspect]
     Active Substance: DONEPEZIL
     Indication: PRODUCT USED FOR UNKNOWN INDICATION
     Dosage: 10 MILLIGRAM, QD,  DONEPEZIL HYDROCHLORIDE
     Route: 065
  7. ISOFLURANE. [Concomitant]
     Active Substance: ISOFLURANE
     Indication: INDUCTION OF ANAESTHESIA
     Dosage: UNK, IN OXYGEN AND NITROUS OXIDE, FIO2 0.5
     Route: 065
  8. SUXAMETHONIUM [Interacting]
     Active Substance: SUCCINYLCHOLINE
     Dosage: UNK
     Route: 065

REACTIONS (3)
  - Paralysis [Recovered/Resolved]
  - Muscle twitching [Recovered/Resolved]
  - Drug interaction [Unknown]
